FAERS Safety Report 14713718 (Version 1)
Quarter: 2018Q2

REPORT INFORMATION
  Report Type: Spontaneous
  Country: FR (occurrence: FR)
  Receive Date: 20180404
  Receipt Date: 20180404
  Transmission Date: 20180711
  Serious: Yes (Life-Threatening)
  Sender: FDA-Public Use
  Company Number: FR-CONCORDIA PHARMACEUTICALS INC.-E2B_00010845

PATIENT
  Age: 67 Year
  Sex: Female
  Weight: 81.3 kg

DRUGS (9)
  1. CORDARONE [Suspect]
     Active Substance: AMIODARONE HYDROCHLORIDE
     Indication: ATRIAL FIBRILLATION
     Route: 048
     Dates: start: 20171201, end: 20171207
  2. KARDEGIC [Concomitant]
     Active Substance: ASPIRIN DL-LYSINE
  3. WARFARINE SODIQUE [Concomitant]
  4. FUROSEMIDE. [Concomitant]
     Active Substance: FUROSEMIDE
  5. CORGARD [Suspect]
     Active Substance: NADOLOL
     Indication: ATRIAL FIBRILLATION
     Route: 048
     Dates: start: 20171202, end: 20171207
  6. IPRATROPIUM (BROMURE D^) MONOHYDRATE [Concomitant]
  7. MOPRAL [Concomitant]
     Active Substance: OMEPRAZOLE
  8. DIGOXIN. [Suspect]
     Active Substance: DIGOXIN
     Indication: ATRIAL FIBRILLATION
     Route: 042
     Dates: start: 20171202, end: 20171202
  9. VALSARTAN. [Concomitant]
     Active Substance: VALSARTAN

REACTIONS (2)
  - Ventricular asystole [Recovered/Resolved]
  - Cardiogenic shock [Recovered/Resolved]

NARRATIVE: CASE EVENT DATE: 20171204
